FAERS Safety Report 6674946-8 (Version None)
Quarter: 2010Q2

REPORT INFORMATION
  Report Type: 
  Country: None (occurrence: None)
  Receive Date: 20100409
  Receipt Date: 20100330
  Transmission Date: 20101027
  Serious: Yes (Other)
  Sender: FDA-Public Use
  Company Number: US-SANOFI-AVENTIS-2010SA019434

PATIENT
  Age: 73 Year
  Sex: Female

DRUGS (3)
  1. LANTUS [Suspect]
     Route: 051
     Dates: start: 20050701
  2. OPTICLICK [Suspect]
     Dates: start: 20050701
  3. HUMALOG [Concomitant]
     Route: 065

REACTIONS (6)
  - FALL [None]
  - IMPAIRED HEALING [None]
  - LEG AMPUTATION [None]
  - LOWER LIMB FRACTURE [None]
  - PAIN IN EXTREMITY [None]
  - STAPHYLOCOCCAL INFECTION [None]
